FAERS Safety Report 14278226 (Version 1)
Quarter: 2017Q4

REPORT INFORMATION
  Report Type: Spontaneous
  Country: CH (occurrence: CH)
  Receive Date: 20171212
  Receipt Date: 20171212
  Transmission Date: 20180321
  Serious: Yes (Death)
  Sender: FDA-Public Use
  Company Number: PHHY2017CH176441

PATIENT
  Age: 43 Year
  Sex: Male

DRUGS (18)
  1. CATAPRESAN [Suspect]
     Active Substance: CLONIDINE
     Dosage: 30 UG, UNK
     Route: 040
     Dates: start: 20171103, end: 20171103
  2. ANXIOLIT [Suspect]
     Active Substance: OXAZEPAM
     Indication: ALCOHOLIC
     Dosage: 15 MG, BID
     Route: 048
     Dates: start: 20171103, end: 20171104
  3. SERETIDE [Concomitant]
     Active Substance: FLUTICASONE PROPIONATE\SALMETEROL XINAFOATE
     Indication: PRODUCT USED FOR UNKNOWN INDICATION
     Route: 065
     Dates: end: 20171104
  4. NEXIUM [Concomitant]
     Active Substance: ESOMEPRAZOLE MAGNESIUM
     Indication: PRODUCT USED FOR UNKNOWN INDICATION
     Dosage: UNK
     Route: 065
     Dates: end: 20171103
  5. BUPIVACAINE. [Suspect]
     Active Substance: BUPIVACAINE
     Indication: EPIDURAL ANALGESIA
     Dosage: 472.5 MG, UNK
     Route: 041
     Dates: start: 20171103, end: 20171104
  6. MORPHINE HCL [Concomitant]
     Active Substance: MORPHINE HYDROCHLORIDE
     Indication: ANALGESIC THERAPY
  7. PERFALGAN [Concomitant]
     Active Substance: ACETAMINOPHEN
     Dosage: 1 G, UNK
     Route: 065
     Dates: start: 20171103, end: 20171104
  8. CLEXANE [Concomitant]
     Active Substance: ENOXAPARIN SODIUM
     Indication: PRODUCT USED FOR UNKNOWN INDICATION
     Dosage: 40 MG, UNK
     Route: 065
     Dates: start: 20171103, end: 20171103
  9. SINTENYL [Suspect]
     Active Substance: FENTANYL CITRATE
     Indication: ANALGESIC THERAPY
     Dosage: 756 UG AND BOLUS 5ML/30 MIN
     Route: 041
     Dates: start: 20171103, end: 20171104
  10. NEXIUM [Concomitant]
     Active Substance: ESOMEPRAZOLE MAGNESIUM
     Dosage: 112 G (80MG 1X THEN 8MG/H PENDANT 4H)
     Route: 065
     Dates: start: 20171103, end: 20171103
  11. PREDNISONE. [Concomitant]
     Active Substance: PREDNISONE
     Indication: PRODUCT USED FOR UNKNOWN INDICATION
     Route: 065
     Dates: end: 20171104
  12. RAPIDOCAIN + EPINEPHRINE [Concomitant]
     Indication: PRODUCT USED FOR UNKNOWN INDICATION
     Dosage: 75 UG, UNK
     Route: 065
     Dates: start: 20171103, end: 20171103
  13. MORPHINE HCL [Concomitant]
     Active Substance: MORPHINE HYDROCHLORIDE
     Indication: FLUID OVERLOAD
     Dosage: 28 MG, UNK
     Route: 042
     Dates: start: 20171103, end: 20171103
  14. MIDAZOLAM [Suspect]
     Active Substance: MIDAZOLAM HYDROCHLORIDE
     Indication: PRODUCT USED FOR UNKNOWN INDICATION
     Dosage: 1 MG, UNK
     Route: 040
     Dates: start: 20171103, end: 20171103
  15. VENTOLIN [Concomitant]
     Active Substance: ALBUTEROL SULFATE
     Indication: PRODUCT USED FOR UNKNOWN INDICATION
     Route: 065
     Dates: end: 20171103
  16. SANDOSTATINE [Suspect]
     Active Substance: OCTREOTIDE ACETATE
     Indication: PRODUCT USED FOR UNKNOWN INDICATION
     Dosage: 100 MG, UNK
     Route: 058
     Dates: start: 20171104, end: 20171104
  17. KETAMIN [Suspect]
     Active Substance: KETAMINE
     Indication: PRODUCT USED FOR UNKNOWN INDICATION
     Dosage: 20 MG, UNK
     Route: 040
     Dates: start: 20171103, end: 20171103
  18. SPIRIVA [Concomitant]
     Active Substance: TIOTROPIUM BROMIDE MONOHYDRATE
     Indication: PRODUCT USED FOR UNKNOWN INDICATION
     Route: 065
     Dates: end: 20171104

REACTIONS (10)
  - Vomiting [None]
  - Faeces discoloured [None]
  - Hypovolaemic shock [None]
  - Gastrointestinal haemorrhage [None]
  - Pancreatitis [None]
  - Cardio-respiratory arrest [Fatal]
  - Dizziness [None]
  - Hypoxic-ischaemic encephalopathy [None]
  - Multiple organ dysfunction syndrome [None]
  - Septic shock [None]

NARRATIVE: CASE EVENT DATE: 20171104
